FAERS Safety Report 6736544-7 (Version None)
Quarter: 2010Q2

REPORT INFORMATION
  Report Type: 
  Country: None (occurrence: None)
  Receive Date: 20100521
  Receipt Date: 20100513
  Transmission Date: 20101027
  Serious: Yes (Other)
  Sender: FDA-Public Use
  Company Number: US-JNJFOC-20100506746

PATIENT
  Age: 3 Month
  Sex: Male

DRUGS (2)
  1. TYLENOL INFANTS SUSP DROPS CHERRY [Suspect]
     Route: 048
  2. TYLENOL INFANTS SUSP DROPS CHERRY [Suspect]
     Indication: DRUG USE FOR UNKNOWN INDICATION
     Route: 048

REACTIONS (2)
  - LOSS OF CONSCIOUSNESS [None]
  - PRODUCT QUALITY ISSUE [None]
